FAERS Safety Report 6106193-2 (Version None)
Quarter: 2009Q1

REPORT INFORMATION
  Report Type: 
  Country: None (occurrence: None)
  Receive Date: 20090306
  Receipt Date: 20090227
  Transmission Date: 20090719
  Serious: Yes (Other)
  Sender: FDA-Public Use
  Company Number: US-ALLERGAN-0815895US

PATIENT
  Sex: Female
  Weight: 57.007 kg

DRUGS (5)
  1. BOTOX COSMETIC [Suspect]
     Indication: SKIN WRINKLING
     Dosage: 30 UNITS, SINGLE
     Route: 030
     Dates: start: 20060614, end: 20060614
  2. BOTOX COSMETIC [Suspect]
     Dosage: 15 UNITS, SINGLE
     Route: 030
     Dates: start: 20060705, end: 20060705
  3. BOTOX COSMETIC [Suspect]
     Dosage: 30 UNITS, SINGLE
     Route: 030
     Dates: start: 20060914, end: 20060914
  4. BOTOX COSMETIC [Suspect]
     Dosage: 30 UNITS, SINGLE
     Route: 030
     Dates: start: 20080111, end: 20080111
  5. CLARITIN-D [Concomitant]

REACTIONS (5)
  - CONTUSION [None]
  - DRUG INEFFECTIVE [None]
  - HEADACHE [None]
  - MASS [None]
  - MYOPERICARDITIS [None]
